FAERS Safety Report 9585752 (Version 1)
Quarter: 2013Q4

REPORT INFORMATION
  Report Type: Spontaneous
  Country: US (occurrence: None)
  Receive Date: 20131002
  Receipt Date: 20131002
  Transmission Date: 20140711
  Serious: Yes (Hospitalization, Disabling)
  Sender: FDA-Public Use
  Company Number: None

PATIENT
  Age: 54 Year
  Sex: Female
  Weight: 95.26 kg

DRUGS (1)
  1. CIPROFLOXACIN [Suspect]

REACTIONS (15)
  - Rash [None]
  - Headache [None]
  - Vertigo [None]
  - Pain [None]
  - Amnesia [None]
  - Anxiety [None]
  - Urticaria [None]
  - Transient ischaemic attack [None]
  - Alopecia [None]
  - Hyperhidrosis [None]
  - Abdominal pain [None]
  - Asthenia [None]
  - Temperature intolerance [None]
  - Temperature intolerance [None]
  - Job dissatisfaction [None]
